FAERS Safety Report 6039489-3 (Version None)
Quarter: 2009Q1

REPORT INFORMATION
  Report Type: 
  Country: None (occurrence: None)
  Receive Date: 20090114
  Receipt Date: 20081217
  Transmission Date: 20090719
  Serious: Yes (Other)
  Sender: FDA-Public Use
  Company Number: IMP_04001_2009

PATIENT
  Sex: Female

DRUGS (1)
  1. BUDEPRION (NOT SPECIFIED) [Suspect]
     Indication: DEPRESSION
     Dosage: (300 MG, ORAL)
     Route: 048
     Dates: start: 20070101, end: 20070101

REACTIONS (4)
  - CHROMATURIA [None]
  - FEELING ABNORMAL [None]
  - HALLUCINATION [None]
  - THERAPEUTIC RESPONSE UNEXPECTED WITH DRUG SUBSTITUTION [None]
